FAERS Safety Report 4435723-1 (Version None)
Quarter: 2004Q3

REPORT INFORMATION
  Report Type: 
  Country: None (occurrence: None)
  Receive Date: 20040828
  Receipt Date: 20040824
  Transmission Date: 20050211
  Serious: Yes (Other)
  Sender: FDA-Public Use
  Company Number: US-MERCK-0408USA01921

PATIENT
  Age: 5 Year
  Sex: Female

DRUGS (2)
  1. ALBUTEROL [Concomitant]
     Route: 065
  2. SINGULAIR [Suspect]
     Route: 048

REACTIONS (4)
  - AGGRESSION [None]
  - HALLUCINATION [None]
  - HOMICIDAL IDEATION [None]
  - SUICIDAL IDEATION [None]
